FAERS Safety Report 24743279 (Version 1)
Quarter: 2024Q4

REPORT INFORMATION
  Report Type: Spontaneous
  Country: ES (occurrence: ES)
  Receive Date: 20241217
  Receipt Date: 20241217
  Transmission Date: 20250114
  Serious: Yes (Congenital Anomaly, Other)
  Sender: ORGANON
  Company Number: ES-ORGANON-O2412ESP000726

PATIENT
  Sex: Male
  Weight: 2.73 kg

DRUGS (1)
  1. FINASTERIDE [Suspect]
     Active Substance: FINASTERIDE
     Dosage: UNK
     Route: 064

REACTIONS (3)
  - Congenital ectopic bladder [Unknown]
  - Foetal exposure via father [Recovered/Resolved]
  - Foetal exposure during pregnancy [Recovered/Resolved]
